FAERS Safety Report 9740774 (Version 1)
Quarter: 2013Q4

REPORT INFORMATION
  Report Type: Spontaneous
  Country: US (occurrence: US)
  Receive Date: 20131209
  Receipt Date: 20131209
  Transmission Date: 20140711
  Serious: Yes (Death)
  Sender: FDA-Public Use
  Company Number: US-PFIZER INC-2013347888

PATIENT
  Age: 68 Year
  Sex: Male

DRUGS (1)
  1. INLYTA [Suspect]
     Indication: TESTIS CANCER
     Dosage: 5 MG, 2X/DAY
     Route: 048
     Dates: start: 20130612

REACTIONS (2)
  - Death [Fatal]
  - Off label use [Unknown]
